FAERS Safety Report 20348758 (Version 1)
Quarter: 2022Q1

REPORT INFORMATION
  Report Type: Report from Study
  Country: US (occurrence: None)
  Receive Date: 20220119
  Receipt Date: 20220119
  Transmission Date: 20220423
  Serious: Yes (Death, Hospitalization)
  Sender: FDA-Public Use
  Company Number: US-ROCHE-2537416

PATIENT
  Age: 73 Year
  Sex: Male
  Weight: 79.5 kg

DRUGS (2)
  1. ATEZOLIZUMAB [Suspect]
     Active Substance: ATEZOLIZUMAB
     Indication: Transitional cell carcinoma
     Dosage: ON 03/JAN/2020, HE RECEIVED LAST DOSE OF ATZOLIZUMAB PRIOR TO SAE
     Route: 041
     Dates: start: 20191122
  2. BEVACIZUMAB [Suspect]
     Active Substance: BEVACIZUMAB
     Indication: Transitional cell carcinoma
     Dosage: ON 03/JAN/2020, HE RECEIVED LAST DOSE OF BEVACIZUMAB PRIOR TO SAE.
     Route: 042
     Dates: start: 20191122

REACTIONS (1)
  - Hepatic failure [Fatal]

NARRATIVE: CASE EVENT DATE: 20200124
